FAERS Safety Report 24457053 (Version 1)
Quarter: 2024Q4

REPORT INFORMATION
  Report Type: Spontaneous
  Country: IN (occurrence: IN)
  Receive Date: 20241018
  Receipt Date: 20241018
  Transmission Date: 20250115
  Serious: Yes (Other)
  Sender: BRISTOL-MYERS SQUIBB COMPANY
  Company Number: IN-BRISTOL-MYERS SQUIBB COMPANY-2024-159569

PATIENT
  Age: 57 Year
  Sex: Female

DRUGS (1)
  1. TRIAMCINOLONE ACETONIDE [Suspect]
     Active Substance: TRIAMCINOLONE ACETONIDE
     Indication: Vitritis
     Dosage: POSTERIOR SUB-TENON^S

REACTIONS (3)
  - Mycotic endophthalmitis [Recovering/Resolving]
  - Aspergillus infection [Recovering/Resolving]
  - Off label use [Unknown]
